FAERS Safety Report 17894592 (Version 4)
Quarter: 2020Q3

REPORT INFORMATION
  Report Type: Spontaneous
  Country: US (occurrence: US)
  Receive Date: 20200615
  Receipt Date: 20200821
  Transmission Date: 20201103
  Serious: Yes (Other)
  Sender: FDA-Public Use
  Company Number: US-GLAXOSMITHKLINE-US2020095332

PATIENT
  Sex: Female

DRUGS (1)
  1. ZEJULA [Suspect]
     Active Substance: NIRAPARIB
     Indication: PANCREATIC CARCINOMA
     Dosage: UNK
     Dates: start: 20200201, end: 202007

REACTIONS (7)
  - Abdominal pain upper [Unknown]
  - Malignant neoplasm progression [Unknown]
  - Oesophageal neoplasm [Unknown]
  - Product use in unapproved indication [Unknown]
  - Off label use [Unknown]
  - Tumour marker increased [Unknown]
  - Drug ineffective for unapproved indication [Unknown]
